FAERS Safety Report 8274051-3 (Version None)
Quarter: 2012Q2

REPORT INFORMATION
  Report Type: 
  Country: None (occurrence: None)
  Receive Date: 20120411
  Receipt Date: 20120410
  Transmission Date: 20120825
  Serious: Yes (Death, Life-Threatening, Hospitalization)
  Sender: FDA-Public Use
  Company Number: PHEH1994US02125

PATIENT
  Sex: Female
  Weight: 50 kg

DRUGS (10)
  1. PROCARDIA [Concomitant]
  2. NEORAL [Suspect]
     Dosage: 500 MG, QD
     Dates: start: 19931001, end: 19931002
  3. MYCOSTATIN [Concomitant]
  4. CEFTRIAXONE [Concomitant]
  5. ACYCLOVIR [Concomitant]
  6. MVI (MULTIVITAMINS) [Concomitant]
  7. COLACE (DOCUSATE SODIUM) [Concomitant]
  8. ZANTAC [Concomitant]
  9. BACTRIM SS (BACTRIM) [Concomitant]
  10. LASIX [Concomitant]

REACTIONS (4)
  - TRANSPLANT REJECTION [None]
  - DEATH [None]
  - VENTRICULAR TACHYCARDIA [None]
  - MYOCARDIAL INFARCTION [None]
